FAERS Safety Report 7961072-0 (Version None)
Quarter: 2011Q4

REPORT INFORMATION
  Report Type: 
  Country: None (occurrence: None)
  Receive Date: 20111201
  Receipt Date: 20111201
  Transmission Date: 20120403
  Serious: Yes (Hospitalization)
  Sender: FDA-Public Use
  Company Number: None

PATIENT
  Age: 86 Year
  Sex: Female
  Weight: 52.6173 kg

DRUGS (1)
  1. BYSTOLIC [Suspect]
     Indication: HYPERTENSION
     Dosage: 5 MG TAB. 1 TABLET DAILY MOUTH
     Route: 048
     Dates: start: 20110723, end: 20111019

REACTIONS (6)
  - INAPPROPRIATE SCHEDULE OF DRUG ADMINISTRATION [None]
  - MEMORY IMPAIRMENT [None]
  - ANGINA PECTORIS [None]
  - INCORRECT DOSE ADMINISTERED [None]
  - DISORIENTATION [None]
  - FATIGUE [None]
